FAERS Safety Report 16094899 (Version 3)
Quarter: 2019Q2

REPORT INFORMATION
  Report Type: Spontaneous
  Country: JP (occurrence: JP)
  Receive Date: 20190320
  Receipt Date: 20190405
  Transmission Date: 20190711
  Serious: Yes (Other)
  Sender: FDA-Public Use
  Company Number: JP-GLAXOSMITHKLINE-JP2019JPN047983

PATIENT
  Age: 45 Year
  Sex: Male

DRUGS (2)
  1. VALTREX [Suspect]
     Active Substance: VALACYCLOVIR HYDROCHLORIDE
     Indication: HERPES OPHTHALMIC
     Dosage: 1000 MG, TID
     Route: 048
     Dates: start: 20190214, end: 20190314
  2. VALTREX [Suspect]
     Active Substance: VALACYCLOVIR HYDROCHLORIDE
     Dosage: 500 MG, TID
     Route: 048
     Dates: start: 20190315, end: 20190321

REACTIONS (6)
  - Product use issue [Unknown]
  - Off label use [Unknown]
  - Prescribed overdose [Unknown]
  - Incorrect product administration duration [Unknown]
  - Herpes ophthalmic [Recovered/Resolved]
  - Symptom recurrence [Recovered/Resolved]

NARRATIVE: CASE EVENT DATE: 2019
